FAERS Safety Report 7604459-8 (Version None)
Quarter: 2011Q3

REPORT INFORMATION
  Report Type: 
  Country: None (occurrence: None)
  Receive Date: 20110712
  Receipt Date: 20110705
  Transmission Date: 20111222
  Serious: Yes (Hospitalization, Other)
  Sender: FDA-Public Use
  Company Number: US-ACTELION-A-US2011-49161

PATIENT

DRUGS (2)
  1. TRACLEER [Suspect]
     Indication: PULMONARY ARTERIAL HYPERTENSION
     Dosage: UNK
     Route: 048
     Dates: start: 20090427
  2. COUMADIN [Concomitant]

REACTIONS (4)
  - VASCULAR ACCESS COMPLICATION [None]
  - SHUNT INFECTION [None]
  - SYNCOPE [None]
  - STENT PLACEMENT [None]
